FAERS Safety Report 5008561-9 (Version None)
Quarter: 2006Q2

REPORT INFORMATION
  Report Type: 
  Country: None (occurrence: None)
  Receive Date: 20060523
  Receipt Date: 20060516
  Transmission Date: 20061013
  Serious: Yes (Hospitalization, Other)
  Sender: FDA-Public Use
  Company Number: DE-AVENTIS-200611453DE

PATIENT
  Age: 67 Year
  Sex: Female

DRUGS (4)
  1. AMARYL [Suspect]
     Indication: DIABETES MELLITUS
     Route: 048
     Dates: start: 20020101, end: 20060101
  2. AMARYL [Suspect]
     Dosage: DOSE: 2X4
     Route: 048
     Dates: start: 20060101
  3. ENALAPRIL [Concomitant]
  4. ASPIRIN [Concomitant]

REACTIONS (7)
  - FALL [None]
  - HYPOGLYCAEMIA [None]
  - HYPOGLYCAEMIC COMA [None]
  - LOSS OF CONSCIOUSNESS [None]
  - NERVOUS SYSTEM DISORDER [None]
  - NEUROLOGICAL SYMPTOM [None]
  - OVERDOSE [None]
